FAERS Safety Report 23444101 (Version 3)
Quarter: 2024Q1

REPORT INFORMATION
  Report Type: Spontaneous
  Country: US (occurrence: US)
  Receive Date: 20240125
  Receipt Date: 20240304
  Transmission Date: 20240410
  Serious: No
  Sender: FDA-Public Use
  Company Number: US-SA-SAC20240118001421

PATIENT
  Age: 55 Year
  Sex: Female

DRUGS (2)
  1. DUPIXENT [Suspect]
     Active Substance: DUPILUMAB
     Indication: Nasal polyps
     Dosage: 300 MG, QOW
     Route: 058
     Dates: start: 20240112
  2. DUPIXENT [Suspect]
     Active Substance: DUPILUMAB
     Indication: Chronic rhinosinusitis with nasal polyps

REACTIONS (14)
  - Influenza [Recovered/Resolved]
  - Pain [Unknown]
  - Influenza virus test positive [Unknown]
  - Headache [Unknown]
  - Pyrexia [Unknown]
  - Eye pain [Unknown]
  - Ocular hyperaemia [Unknown]
  - Alopecia [Unknown]
  - Vision blurred [Not Recovered/Not Resolved]
  - Toothache [Unknown]
  - Arthralgia [Unknown]
  - Ocular hyperaemia [Recovered/Resolved]
  - Conjunctivitis [Unknown]
  - Conjunctivitis [Unknown]

NARRATIVE: CASE EVENT DATE: 20240113
